FAERS Safety Report 9749906 (Version 1)
Quarter: 2013Q4

REPORT INFORMATION
  Report Type: Spontaneous
  Country: US (occurrence: US)
  Receive Date: 20131212
  Receipt Date: 20131212
  Transmission Date: 20140711
  Serious: Yes (Hospitalization)
  Sender: FDA-Public Use
  Company Number: US-CUBIST PHARMACEUTICAL, INC.-2013CBST001274

PATIENT
  Age: 54 Year
  Sex: Female

DRUGS (5)
  1. CUBICIN [Suspect]
     Indication: ENDOCARDITIS
     Dosage: UNK UNK, UNK
     Route: 065
  2. CUBICIN [Suspect]
     Indication: BACTERAEMIA
  3. CUBICIN [Suspect]
     Indication: OFF LABEL USE
  4. RIFAMPIN [Concomitant]
     Indication: ENDOCARDITIS
     Dosage: UNK UNK, UNK
     Route: 065
  5. RIFAMPIN [Concomitant]
     Indication: BACTERAEMIA

REACTIONS (5)
  - Anticoagulation drug level below therapeutic [Recovered/Resolved]
  - Pyrexia [Recovered/Resolved]
  - Cardiac valve replacement complication [Recovered/Resolved]
  - Mitral valve stenosis [Recovered/Resolved]
  - Aortic valve incompetence [Recovered/Resolved]
